FAERS Safety Report 8622942-3 (Version None)
Quarter: 2012Q3

REPORT INFORMATION
  Report Type: 
  Country: None (occurrence: None)
  Receive Date: 20120813
  Receipt Date: 20120807
  Transmission Date: 20120928
  Serious: Yes (Hospitalization)
  Sender: FDA-Public Use
  Company Number: DSA_58878_2012

PATIENT
  Sex: Male

DRUGS (14)
  1. FISH OIL [Concomitant]
  2. ASPIRIN [Concomitant]
  3. RAMIPRIL [Concomitant]
  4. EFFIENT [Concomitant]
  5. LUPRON DEPOT [Concomitant]
  6. XENAZINE [Suspect]
     Indication: DYSKINESIA
     Dosage: (12.5 MG BID ORAL)
     Route: 048
     Dates: start: 20120516
  7. VITAMIN E [Concomitant]
  8. CITRACAL [Concomitant]
  9. DIGOXIN [Concomitant]
  10. OMEPRAZOLE [Concomitant]
  11. LASIX [Concomitant]
  12. FENOFIBRATE [Concomitant]
  13. POTASSIUM CHLORIDE [Concomitant]
  14. SIMVASTATIN [Concomitant]

REACTIONS (1)
  - CARDIAC DISORDER [None]
